FAERS Safety Report 18233460 (Version 1)
Quarter: 2020Q3

REPORT INFORMATION
  Report Type: Spontaneous
  Country: US (occurrence: US)
  Receive Date: 20200904
  Receipt Date: 20200904
  Transmission Date: 20201103
  Serious: Yes (Hospitalization)
  Sender: FDA-Public Use
  Company Number: None

PATIENT
  Age: 16 Year
  Sex: Male
  Weight: 56.25 kg

DRUGS (1)
  1. GAMMAPLEX [Suspect]
     Active Substance: HUMAN IMMUNOGLOBULIN G
     Indication: ENCEPHALITIS
     Dosage: ?          OTHER FREQUENCY:60GM X 2D Q4WKS;?
     Route: 042
     Dates: start: 20200706, end: 20200706

REACTIONS (8)
  - Tic [None]
  - Condition aggravated [None]
  - Echolalia [None]
  - Incorrect dose administered [None]
  - Aggression [None]
  - Dyskinesia [None]
  - Autism spectrum disorder [None]
  - Mutism [None]

NARRATIVE: CASE EVENT DATE: 20200706
